FAERS Safety Report 9202386 (Version 1)
Quarter: 2013Q2

REPORT INFORMATION
  Report Type: Report from Study
  Country: FR (occurrence: FR)
  Receive Date: 20130401
  Receipt Date: 20130401
  Transmission Date: 20140414
  Serious: Yes (Other)
  Sender: FDA-Public Use
  Company Number: PHHY2008FR22828

PATIENT
  Sex: 0

DRUGS (2)
  1. STI571 [Suspect]
     Indication: CHRONIC MYELOID LEUKAEMIA
     Dosage: 400 MG, DAILY
     Dates: start: 20071120
  2. KARDEGIC [Concomitant]
     Dosage: 75 MG, UNK

REACTIONS (1)
  - Impaired healing [Recovered/Resolved]
